FAERS Safety Report 6262911-4 (Version None)
Quarter: 2009Q3

REPORT INFORMATION
  Report Type: 
  Country: None (occurrence: None)
  Receive Date: 20090708
  Receipt Date: 20090622
  Transmission Date: 20100115
  Serious: Yes (Other)
  Sender: FDA-Public Use
  Company Number: 2009BI019777

PATIENT
  Age: 54 Year

DRUGS (4)
  1. ZEVALIN [Suspect]
     Indication: NON-HODGKIN'S LYMPHOMA
  2. FLUDARABINE PHOSPHATE [Concomitant]
  3. CYCLOSPORINE [Concomitant]
  4. PREV MEDS [Concomitant]

REACTIONS (1)
  - MUCORMYCOSIS [None]
